FAERS Safety Report 21786502 (Version 2)
Quarter: 2023Q1

REPORT INFORMATION
  Report Type: Spontaneous
  Country: FI (occurrence: FI)
  Receive Date: 20221228
  Receipt Date: 20230106
  Transmission Date: 20230418
  Serious: No
  Sender: FDA-Public Use
  Company Number: FI-TOLMAR, INC.-22FI038079

PATIENT

DRUGS (1)
  1. ELIGARD [Suspect]
     Active Substance: LEUPROLIDE ACETATE
     Indication: Product used for unknown indication
     Dosage: 45 MILLIGRAM
     Dates: start: 20221019

REACTIONS (3)
  - Intercepted product preparation error [Unknown]
  - Product physical consistency issue [Unknown]
  - Product label confusion [Unknown]

NARRATIVE: CASE EVENT DATE: 20221019
